FAERS Safety Report 4981052-7 (Version None)
Quarter: 2006Q1

REPORT INFORMATION
  Report Type: 
  Country: None (occurrence: None)
  Receive Date: 20060227
  Receipt Date: 20051129
  Transmission Date: 20060701
  Serious: Yes (Hospitalization, Disabling)
  Sender: FDA-Public Use
  Company Number: WAES 0511USA04513

PATIENT
  Age: 81 Year
  Sex: Female

DRUGS (6)
  1. ZOCOR [Suspect]
     Indication: BLOOD CHOLESTEROL INCREASED
     Dosage: 20 MG/DAILY/PO
     Route: 048
     Dates: start: 20030601, end: 20050225
  2. ASACOL [Concomitant]
  3. LASIX [Concomitant]
  4. LIBRAX [Suspect]
  5. PREVACID [Concomitant]
  6. POTASSIUM (UNSPECIFIED) [Concomitant]

REACTIONS (1)
  - MUSCULAR WEAKNESS [None]
